FAERS Safety Report 18857481 (Version 1)
Quarter: 2021Q1

REPORT INFORMATION
  Report Type: Report from Study
  Country: None (occurrence: PA)
  Receive Date: 20210208
  Receipt Date: 20210208
  Transmission Date: 20210420
  Serious: Yes (Hospitalization)
  Sender: FDA-Public Use
  Company Number: PA-ABBVIE-21K-125-3761268-00

PATIENT
  Sex: Male
  Weight: 63 kg

DRUGS (3)
  1. CROMATONBIC FERRO [Concomitant]
     Indication: ANAEMIA
     Route: 048
  2. HUMIRA [Suspect]
     Active Substance: ADALIMUMAB
     Indication: CROHN^S DISEASE
     Route: 058
     Dates: start: 20161005, end: 20200227
  3. COMPLEJO B [Concomitant]
     Indication: ANAEMIA

REACTIONS (4)
  - Malabsorption [Unknown]
  - Weight increased [Recovering/Resolving]
  - Haemoglobin decreased [Recovering/Resolving]
  - Anaemia [Recovering/Resolving]

NARRATIVE: CASE EVENT DATE: 2018
